FAERS Safety Report 7350127-X (Version None)
Quarter: 2011Q1

REPORT INFORMATION
  Report Type: 
  Country: None (occurrence: None)
  Receive Date: 20110302
  Receipt Date: 20110216
  Transmission Date: 20110831
  Serious: Yes (Hospitalization, Other)
  Sender: FDA-Public Use
  Company Number: 027700

PATIENT
  Sex: Female
  Weight: 52.1637 kg

DRUGS (4)
  1. PREDNISONE [Concomitant]
  2. CIMZIA [Suspect]
     Indication: CROHN'S DISEASE
     Dosage: 2 SHOTS, SUBCUTANEOUS
     Route: 058
     Dates: start: 20110101
  3. SULFAZINE [Concomitant]
  4. ZYRTEC [Concomitant]

REACTIONS (3)
  - ABDOMINAL DISTENSION [None]
  - ABDOMINAL PAIN [None]
  - GASTROINTESTINAL STENOSIS [None]
